FAERS Safety Report 13078372 (Version 4)
Quarter: 2017Q2

REPORT INFORMATION
  Report Type: Spontaneous
  Country: IT (occurrence: IT)
  Receive Date: 20170102
  Receipt Date: 20170426
  Transmission Date: 20170830
  Serious: Yes (Life-Threatening, Hospitalization, Other)
  Sender: FDA-Public Use
  Company Number: IT-AUROBINDO-AUR-APL-2016-15980

PATIENT
  Age: 3 Year
  Sex: Male

DRUGS (3)
  1. LAMOTRIGINE. [Suspect]
     Active Substance: LAMOTRIGINE
     Indication: PRODUCT USED FOR UNKNOWN INDICATION
     Dosage: UNK, ONE LAMOTRIGIN-200 MG BLISTER WITH 8 TABLETS MISSING
     Route: 065
  2. LAMOTRIGINE. [Suspect]
     Active Substance: LAMOTRIGINE
     Dosage: UNK
  3. VALPROIC ACID. [Suspect]
     Active Substance: VALPROIC ACID
     Indication: PRODUCT USED FOR UNKNOWN INDICATION
     Route: 065

REACTIONS (22)
  - Bundle branch block right [Recovered/Resolved]
  - Dysmetria [Recovered/Resolved]
  - Restlessness [Unknown]
  - Oculogyric crisis [Recovered/Resolved]
  - Toxicity to various agents [Unknown]
  - Accidental exposure to product by child [Unknown]
  - Ataxia [Recovered/Resolved]
  - Loss of consciousness [Unknown]
  - Status epilepticus [Recovered/Resolved]
  - Increased appetite [Unknown]
  - Hyperhidrosis [Unknown]
  - Sinus tachycardia [Recovered/Resolved]
  - Thirst [Unknown]
  - Seizure [Unknown]
  - Protrusion tongue [Unknown]
  - Malaise [Unknown]
  - Hyperphagia [Not Recovered/Not Resolved]
  - Dystonia [Recovered/Resolved]
  - Tonic clonic movements [Unknown]
  - Hyperkinesia [Unknown]
  - Accidental overdose [Unknown]
  - Agitation [Unknown]
